FAERS Safety Report 4353224-6 (Version None)
Quarter: 2004Q2

REPORT INFORMATION
  Report Type: 
  Country: None (occurrence: None)
  Receive Date: 20040505
  Receipt Date: 20030814
  Transmission Date: 20050107
  Serious: Yes (Death, Other)
  Sender: FDA-Public Use
  Company Number: PHNU2003DE03105

PATIENT
  Age: 53 Year
  Sex: Male

DRUGS (22)
  1. XIMOVAN [Interacting]
     Dosage: 7.5MG/DAY
     Route: 048
     Dates: start: 20030604
  2. CONCOR [Concomitant]
     Dosage: 2.5MG/DAY
     Route: 048
     Dates: start: 20030101
  3. GLIMEPIRIDE [Concomitant]
     Dosage: 2MG/DAY
     Route: 048
     Dates: start: 20030101
  4. SLOW SODIUM [Concomitant]
     Dosage: 2DF/DAY
     Route: 048
     Dates: start: 20030610
  5. PIRENZEPINE [Suspect]
     Dosage: 50 MG/DAY
     Route: 048
     Dates: start: 20030604
  6. DIAZEPAM [Concomitant]
     Dosage: 4MG/DAY
     Route: 048
     Dates: start: 20030708, end: 20030717
  7. DIAZEPAM [Concomitant]
     Dosage: 2MG/DAY
     Route: 048
     Dates: start: 20030718, end: 20030722
  8. DIAZEPAM [Concomitant]
     Dosage: 1MG/DAY
     Route: 048
     Dates: start: 20030723, end: 20030724
  9. BIFITERAL [Concomitant]
     Route: 048
     Dates: start: 20030712, end: 20030727
  10. NEUROCIL [Suspect]
     Dosage: 100 MG/DAY
     Route: 048
     Dates: start: 20030604, end: 20030707
  11. NEUROCIL [Suspect]
     Dosage: 50 MG/DAY
     Route: 048
     Dates: start: 20030708, end: 20030722
  12. LORAZEPAM [Concomitant]
     Dosage: UNKNOWN
     Route: 048
  13. LORAZEPAM [Concomitant]
     Dosage: 1 MG/DAY
     Route: 048
     Dates: start: 20030604, end: 20030630
  14. LORAZEPAM [Concomitant]
     Dosage: 0.5 MG/DAY
     Route: 048
     Dates: start: 20030701, end: 20030702
  15. GLIANIMON [Concomitant]
     Dosage: UNKNOWN
     Route: 065
  16. GLIANIMON [Concomitant]
     Dosage: 6 MG/DAY
     Route: 048
     Dates: start: 20030604, end: 20030624
  17. GLIANIMON [Concomitant]
     Dosage: 3 MG/DAY
     Route: 048
     Dates: start: 20030625, end: 20030702
  18. GLIANIMON [Concomitant]
     Dosage: 1 MG/DAY
     Route: 048
     Dates: start: 20030703, end: 20030707
  19. CLOZAPINE [Suspect]
     Indication: SCHIZOPHRENIA, PARANOID TYPE
     Dosage: 250MG/DAY
     Route: 048
     Dates: start: 20030611, end: 20030702
  20. CLOZAPINE [Suspect]
     Dosage: 400MG/DAY
     Route: 048
     Dates: start: 20030703, end: 20030713
  21. CLOZAPINE [Suspect]
     Dosage: 500MG/DAY
     Route: 048
     Dates: start: 20030714
  22. CLOZAPINE [Suspect]
     Dosage: 12.5 TO 150 MG/DAY
     Route: 048
     Dates: start: 20030604, end: 20030610

REACTIONS (19)
  - ABDOMINAL PAIN [None]
  - ASPIRATION [None]
  - CARDIOMEGALY [None]
  - DRUG LEVEL ABOVE THERAPEUTIC [None]
  - GASTROINTESTINAL HAEMORRHAGE [None]
  - GASTROINTESTINAL MOTILITY DISORDER [None]
  - HAEMATEMESIS [None]
  - HEPATIC CONGESTION [None]
  - ILEUS PARALYTIC [None]
  - MALLORY-WEISS SYNDROME [None]
  - NAUSEA [None]
  - OESOPHAGITIS [None]
  - RENAL DISORDER [None]
  - RESPIRATORY FAILURE [None]
  - RESUSCITATION [None]
  - SHOCK HAEMORRHAGIC [None]
  - SPLEEN CONGESTION [None]
  - URINARY INCONTINENCE [None]
  - VOMITING [None]
